FAERS Safety Report 14349798 (Version 4)
Quarter: 2018Q1

REPORT INFORMATION
  Report Type: Report from Study
  Country: US (occurrence: US)
  Receive Date: 20180104
  Receipt Date: 20180205
  Transmission Date: 20180509
  Serious: Yes (Hospitalization)
  Sender: FDA-Public Use
  Company Number: US-GILEAD-2018-0313558

PATIENT
  Age: 64 Year
  Sex: Female
  Weight: 76.64 kg

DRUGS (4)
  1. AMBRISENTAN [Suspect]
     Active Substance: AMBRISENTAN
     Indication: PULMONARY HYPERTENSION
     Dosage: 5 MG, QD
     Route: 065
     Dates: start: 20161202
  2. AMBRISENTAN [Suspect]
     Active Substance: AMBRISENTAN
     Dosage: 10 MG, QD
     Route: 065
     Dates: start: 20151201
  3. AMBRISENTAN [Suspect]
     Active Substance: AMBRISENTAN
     Dosage: 20 MG, ONCE
     Route: 065
     Dates: start: 20180123, end: 20180123
  4. OXYGEN. [Concomitant]
     Active Substance: OXYGEN

REACTIONS (7)
  - Cold sweat [Unknown]
  - Drug dose omission [Unknown]
  - Accidental overdose [Unknown]
  - Palpitations [Unknown]
  - Nasal congestion [Unknown]
  - Food poisoning [Unknown]
  - Inappropriate schedule of drug administration [Unknown]

NARRATIVE: CASE EVENT DATE: 20171230
